FAERS Safety Report 24386990 (Version 4)
Quarter: 2025Q1

REPORT INFORMATION
  Report Type: Report from Study
  Country: US (occurrence: US)
  Receive Date: 20241002
  Receipt Date: 20250214
  Transmission Date: 20250409
  Serious: Yes (Hospitalization)
  Sender: TAKEDA
  Company Number: US-TAKEDA-2023TUS002431

PATIENT
  Sex: Female
  Weight: 49 kg

DRUGS (37)
  1. TEDUGLUTIDE [Suspect]
     Active Substance: TEDUGLUTIDE
     Indication: Malabsorption
     Dosage: 2.25 MILLIGRAM, QD
  2. TEDUGLUTIDE [Suspect]
     Active Substance: TEDUGLUTIDE
     Indication: Short-bowel syndrome
     Dosage: 0.29 MILLILITER, QD
  3. TEDUGLUTIDE [Suspect]
     Active Substance: TEDUGLUTIDE
     Indication: Irritable bowel syndrome
     Dosage: 0.29 MILLILITER, QD
  4. TEDUGLUTIDE [Suspect]
     Active Substance: TEDUGLUTIDE
     Dosage: 0.29 MILLILITER, QD
  5. TEDUGLUTIDE [Suspect]
     Active Substance: TEDUGLUTIDE
     Dosage: 0.29 MILLILITER, QD
  6. ONDANSETRON [Concomitant]
     Active Substance: ONDANSETRON
  7. BUPRENORPHINE HYDROCHLORIDE [Concomitant]
     Active Substance: BUPRENORPHINE HYDROCHLORIDE
  8. TRAZODONE HCL [Concomitant]
     Active Substance: TRAZODONE HYDROCHLORIDE
  9. CIPRO [Concomitant]
     Active Substance: CIPROFLOXACIN HYDROCHLORIDE
  10. OXYCODONE HYDROCHLORIDE [Concomitant]
     Active Substance: OXYCODONE HYDROCHLORIDE
  11. DOCUSATE SODIUM [Concomitant]
     Active Substance: DOCUSATE SODIUM
  12. FAMOTIDINE [Concomitant]
     Active Substance: FAMOTIDINE
  13. LORATADINE [Concomitant]
     Active Substance: LORATADINE
  14. PREMARIN [Concomitant]
     Active Substance: ESTROGENS, CONJUGATED
  15. ALBUTEROL SULFATE [Concomitant]
     Active Substance: ALBUTEROL SULFATE
  16. VOLTAREN ARTHRITIS PAIN [Concomitant]
     Active Substance: DICLOFENAC SODIUM
  17. PREGABALIN [Concomitant]
     Active Substance: PREGABALIN
  18. FENTANYL [Concomitant]
     Active Substance: FENTANYL
  19. OXYCODONE AND ACETAMINOPHEN [Concomitant]
     Active Substance: ACETAMINOPHEN\OXYCODONE HYDROCHLORIDE
  20. LACTULOSE [Concomitant]
     Active Substance: LACTULOSE
  21. RELISTOR [Concomitant]
     Active Substance: METHYLNALTREXONE BROMIDE
  22. ACETAMINOPHEN\HYDROCODONE [Concomitant]
     Active Substance: ACETAMINOPHEN\HYDROCODONE
  23. OCTREOTIDE ACETATE [Concomitant]
     Active Substance: OCTREOTIDE ACETATE
  24. IBUPROFEN [Concomitant]
     Active Substance: IBUPROFEN
  25. OMEPRAZOLE [Concomitant]
     Active Substance: OMEPRAZOLE
  26. EXCEDRIN EXTRA STRENGTH [Concomitant]
     Active Substance: ACETAMINOPHEN\ASPIRIN\CAFFEINE
  27. CETIRIZINE [Concomitant]
     Active Substance: CETIRIZINE HYDROCHLORIDE
  28. HEPARIN [Concomitant]
     Active Substance: HEPARIN SODIUM
  29. SODIUM CHLORIDE [Concomitant]
     Active Substance: SODIUM CHLORIDE
  30. NALOXONE HCL [Concomitant]
     Active Substance: NALOXONE HYDROCHLORIDE
  31. DICLOFENAC SODIUM [Concomitant]
     Active Substance: DICLOFENAC SODIUM
  32. ACETAMINOPHEN [Concomitant]
     Active Substance: ACETAMINOPHEN
  33. ASPIRIN [Concomitant]
     Active Substance: ASPIRIN
  34. INFUVITE ADULT [Concomitant]
     Active Substance: .ALPHA.-TOCOPHEROL ACETATE\ASCORBIC ACID\BIOTIN\CHOLECALCIFEROL\CYANOCOBALAMIN\DEXPANTHENOL\FOLIC AC
  35. ATROPINE\DIPHENOXYLATE [Concomitant]
     Active Substance: ATROPINE\DIPHENOXYLATE
  36. VITAMIN D3 [Concomitant]
     Active Substance: CHOLECALCIFEROL
  37. PSEUDOEPHEDRINE [Concomitant]
     Active Substance: PSEUDOEPHEDRINE

REACTIONS (16)
  - Abdominal discomfort [Unknown]
  - Chills [Unknown]
  - Dyspepsia [Unknown]
  - Insomnia [Unknown]
  - Nausea [Unknown]
  - Urinary tract infection [Not Recovered/Not Resolved]
  - Haemorrhage [Unknown]
  - Abdominal tenderness [Unknown]
  - Gastrointestinal disorder [Unknown]
  - Injection related reaction [Unknown]
  - Product use issue [Unknown]
  - Decreased appetite [Unknown]
  - Abdominal pain upper [Unknown]
  - Flatulence [Unknown]
  - Abdominal distension [Unknown]
  - Abdominal pain [Unknown]
